FAERS Safety Report 6985615-9 (Version None)
Quarter: 2010Q3

REPORT INFORMATION
  Report Type: 
  Country: None (occurrence: None)
  Receive Date: 20100915
  Receipt Date: 20100910
  Transmission Date: 20110219
  Serious: Yes (Other)
  Sender: FDA-Public Use
  Company Number: AU-BRISTOL-MYERS SQUIBB COMPANY-15281512

PATIENT
  Sex: Male

DRUGS (2)
  1. BARACLUDE [Suspect]
  2. TACROLIMUS [Suspect]

REACTIONS (1)
  - RENAL FAILURE ACUTE [None]
